FAERS Safety Report 7826890-8 (Version None)
Quarter: 2011Q4

REPORT INFORMATION
  Report Type: 
  Country: None (occurrence: None)
  Receive Date: 20111019
  Receipt Date: 20111019
  Transmission Date: 20120403
  Serious: Yes (Life-Threatening)
  Sender: FDA-Public Use
  Company Number: None

PATIENT
  Sex: Female
  Weight: 92.9874 kg

DRUGS (1)
  1. NEURONTIN [Suspect]
     Indication: NEUROPATHY PERIPHERAL
     Dosage: 2 CAPSULES 2X DAILY
     Dates: start: 20080801

REACTIONS (2)
  - BLOOD PRESSURE INCREASED [None]
  - COUNTERFEIT DRUG ADMINISTERED [None]
